FAERS Safety Report 5957848-1 (Version None)
Quarter: 2008Q4

REPORT INFORMATION
  Report Type: 
  Country: None (occurrence: None)
  Receive Date: 20081117
  Receipt Date: 20081101
  Transmission Date: 20090506
  Serious: Yes (Hospitalization)
  Sender: FDA-Public Use
  Company Number: POMP-1000382

PATIENT
  Age: 11 Month
  Sex: Male
  Weight: 10 kg

DRUGS (10)
  1. MYOZYME [Suspect]
     Indication: GLYCOGEN STORAGE DISEASE TYPE II
     Dosage: 250 MG, Q2W, INTRAVENOUS
     Route: 042
     Dates: start: 20080415
  2. BUDESONIDE [Concomitant]
  3. CETRIZINE (CETIRIZINE ) [Concomitant]
  4. DNASE (DEOXYRIBONUCLEASE) [Concomitant]
  5. IPRATROPIUM BROMIDE [Concomitant]
  6. LEVALBUTEROL (LEVOSALBUTAMOL) [Concomitant]
  7. LORAZEPAM [Concomitant]
  8. RANITIDINE [Concomitant]
  9. CROMOLYN (CROMOLYN) [Concomitant]
  10. OMEPRAZOLE [Concomitant]

REACTIONS (22)
  - ACUTE RESPIRATORY FAILURE [None]
  - AGITATION [None]
  - BLOOD PRESSURE DECREASED [None]
  - CLOSTRIDIUM DIFFICILE TOXIN TEST POSITIVE [None]
  - COLLAPSE OF LUNG [None]
  - CRYING [None]
  - DIAPHRAGMATIC PARALYSIS [None]
  - GASTROSTOMY TUBE INSERTION [None]
  - GRUNTING [None]
  - HYPERHIDROSIS [None]
  - INFUSION RELATED REACTION [None]
  - LUNG INFECTION PSEUDOMONAL [None]
  - PALLOR [None]
  - PLEURAL EFFUSION [None]
  - RASH [None]
  - RESPIRATORY DISTRESS [None]
  - RETCHING [None]
  - TACHYCARDIA [None]
  - TRACHEOMALACIA [None]
  - TREATMENT FAILURE [None]
  - VOCAL CORD PARESIS [None]
  - VOMITING [None]
